FAERS Safety Report 20738136 (Version 2)
Quarter: 2022Q4

REPORT INFORMATION
  Report Type: Spontaneous
  Country: FR (occurrence: FR)
  Receive Date: 20220422
  Receipt Date: 20221027
  Transmission Date: 20230113
  Serious: Yes (Other)
  Sender: FDA-Public Use
  Company Number: None

PATIENT
  Age: 59 Year
  Sex: Male

DRUGS (6)
  1. OXALIPLATIN [Suspect]
     Active Substance: OXALIPLATIN
     Indication: Adenocarcinoma gastric
     Dosage: 110MG, FREQUENCY TIME 1CYCLICAL, DURATION 13DAYS
     Route: 041
     Dates: start: 20211209, end: 20211222
  2. OXALIPLATIN [Suspect]
     Active Substance: OXALIPLATIN
     Dosage: 220MG, FREQUENCY TIME 1CYCLILCAL, DURATION 80DAYS
     Route: 041
     Dates: start: 20220105, end: 20220326
  3. FLUOROURACIL [Suspect]
     Active Substance: FLUOROURACIL
     Indication: Adenocarcinoma gastric
     Dosage: 3950MG, FREQUENCY TIME 1CYCLICAL, DURATION 13DAYS
     Route: 041
     Dates: start: 20211209, end: 20211222
  4. CAPECITABINE [Suspect]
     Active Substance: CAPECITABINE
     Indication: Adenocarcinoma gastric
     Dosage: 54.6GM, FREQUENCY TIME 1MONTHS, DURATION 55DAYS
     Route: 048
     Dates: start: 20220106, end: 20220302
  5. METHYLPREDNISOLONE [Suspect]
     Active Substance: METHYLPREDNISOLONE
     Indication: Adenocarcinoma gastric
     Dosage: 40MG, FREQUENCY TIME 1CYCLICAL, DURATION 69DAYS
     Route: 042
     Dates: start: 20211209, end: 20220216
  6. LEVOLEUCOVORIN CALCIUM [Concomitant]
     Active Substance: LEVOLEUCOVORIN CALCIUM
     Indication: Product used for unknown indication
     Dosage: 330MG, FREQUENCY TIME 1CYCLICAL, DURATION 13DAYS
     Route: 042
     Dates: start: 20211209, end: 20211222

REACTIONS (1)
  - Thrombotic microangiopathy [Recovered/Resolved]

NARRATIVE: CASE EVENT DATE: 20211230
